FAERS Safety Report 16365668 (Version 1)
Quarter: 2019Q2

REPORT INFORMATION
  Report Type: Spontaneous
  Country: DE (occurrence: DE)
  Receive Date: 20190529
  Receipt Date: 20190529
  Transmission Date: 20190711
  Serious: Yes (Hospitalization)
  Sender: FDA-Public Use
  Company Number: DE-HORIZON-PRE-0222-2019

PATIENT
  Age: 77 Year
  Sex: Female

DRUGS (4)
  1. LODOTRA [Suspect]
     Active Substance: PREDNISONE
     Indication: ARTHRITIS
     Dosage: 1 TABLET ONE-TIME; IN TOTAL
     Route: 048
     Dates: start: 20190504
  2. TORASEMID [Concomitant]
     Active Substance: TORSEMIDE
  3. BELOC-ZOK MITE [Concomitant]
     Active Substance: METOPROLOL SUCCINATE
  4. ACONITE [Concomitant]
     Active Substance: ACONITUM NAPELLUS\HOMEOPATHICS

REACTIONS (6)
  - Flatulence [Recovering/Resolving]
  - Nausea [Recovering/Resolving]
  - Abdominal discomfort [Recovering/Resolving]
  - Malaise [Recovering/Resolving]
  - Gastritis [Recovering/Resolving]
  - Abdominal pain [Recovering/Resolving]

NARRATIVE: CASE EVENT DATE: 20190504
